FAERS Safety Report 6860137-4 (Version None)
Quarter: 2010Q3

REPORT INFORMATION
  Report Type: 
  Country: None (occurrence: None)
  Receive Date: 20100720
  Receipt Date: 20100708
  Transmission Date: 20110219
  Serious: Yes (Death, Hospitalization, Disabling, Other)
  Sender: FDA-Public Use
  Company Number: US-PFIZER INC-2010031992

PATIENT
  Sex: Female
  Weight: 47.62 kg

DRUGS (1)
  1. CHANTIX [Suspect]
     Indication: SMOKING CESSATION THERAPY
     Dosage: 0.5 MG, 1X/DAY
     Route: 048
     Dates: start: 20071115, end: 20071121

REACTIONS (16)
  - CONVULSION [None]
  - DIABETES MELLITUS [None]
  - FOOT DEFORMITY [None]
  - GENERAL PHYSICAL CONDITION ABNORMAL [None]
  - HOSTILITY [None]
  - HYPOVENTILATION [None]
  - MALIGNANT NEOPLASM PROGRESSION [None]
  - MENTAL STATUS CHANGES [None]
  - MUMPS [None]
  - OVERDOSE [None]
  - PARALYSIS [None]
  - PARANOIA [None]
  - QUALITY OF LIFE DECREASED [None]
  - RASH [None]
  - STEVENS-JOHNSON SYNDROME [None]
  - SWELLING FACE [None]
